FAERS Safety Report 9408372 (Version 1)
Quarter: 2013Q3

REPORT INFORMATION
  Report Type: Spontaneous
  Country: AU (occurrence: AU)
  Receive Date: 20130718
  Receipt Date: 20130718
  Transmission Date: 20140515
  Serious: Yes (Hospitalization, Other)
  Sender: FDA-Public Use
  Company Number: PHHY2013AU072752

PATIENT
  Age: 78 Year
  Sex: Male

DRUGS (3)
  1. AMIODARONE SANDOZ [Suspect]
     Dosage: 200 MG EVERY MONDAY, WEDNESDAY AND FRIDAY
     Dates: start: 20121022
  2. DILANTIN [Interacting]
     Dosage: 300 MG (200 MG IN THE MORNING AND 100 MG IN THE EVENING)
     Dates: start: 1986
  3. DILANTIN [Interacting]
     Dosage: 2 DF, QD (REDUCED DILANTIN FROM 3 PER DAY TO 2 PER DAY)
     Dates: start: 20130611

REACTIONS (11)
  - Balance disorder [Recovering/Resolving]
  - Basilar migraine [Unknown]
  - Dysarthria [Recovering/Resolving]
  - Coordination abnormal [Recovering/Resolving]
  - Tremor [Recovering/Resolving]
  - Visual field defect [Recovering/Resolving]
  - Ataxia [Recovering/Resolving]
  - Fall [Recovering/Resolving]
  - Asthenia [Recovering/Resolving]
  - General physical health deterioration [Recovering/Resolving]
  - Drug level increased [Recovering/Resolving]
